FAERS Safety Report 16299955 (Version 2)
Quarter: 2019Q2

REPORT INFORMATION
  Report Type: Spontaneous
  Country: FR (occurrence: FR)
  Receive Date: 20190510
  Receipt Date: 20190522
  Transmission Date: 20190711
  Serious: Yes (Hospitalization)
  Sender: FDA-Public Use
  Company Number: FR-TEVA-2019-FR-1046881

PATIENT
  Age: 67 Year
  Sex: Male

DRUGS (4)
  1. IRINOTECAN [Suspect]
     Active Substance: IRINOTECAN
     Indication: ADENOCARCINOMA PANCREAS
     Dosage: 260 MG ACCORDING TO THE CYCLE
     Route: 041
     Dates: start: 20190405, end: 20190405
  2. ZOPHREN 8 MG/4 ML, SOLUTION INJECTABLE EN SERINGUE PR?-REMPLIE [Suspect]
     Active Substance: ONDANSETRON
     Indication: NAUSEA
     Dates: start: 20190405, end: 20190409
  3. OXALIPLATINE [Suspect]
     Active Substance: OXALIPLATIN
     Indication: ADENOCARCINOMA PANCREAS
     Dosage: 145 MG ACCORDING TO THE CYCLE
     Route: 041
     Dates: start: 20190405, end: 20190405
  4. FLUOROURACIL. [Suspect]
     Active Substance: FLUOROURACIL
     Indication: ADENOCARCINOMA PANCREAS
     Dosage: 8300 MG ACCORDING TO THE CYCLE
     Route: 041
     Dates: start: 20190405, end: 20190407

REACTIONS (1)
  - Leukoencephalopathy [Recovering/Resolving]

NARRATIVE: CASE EVENT DATE: 20190407
